FAERS Safety Report 21528874 (Version 2)
Quarter: 2023Q1

REPORT INFORMATION
  Report Type: Spontaneous
  Country: US (occurrence: US)
  Receive Date: 20221031
  Receipt Date: 20230120
  Transmission Date: 20230418
  Serious: No
  Sender: FDA-Public Use
  Company Number: US-BEH-2022151116

PATIENT
  Age: 42 Year
  Sex: Male

DRUGS (29)
  1. HIZENTRA [Suspect]
     Active Substance: HUMAN IMMUNOGLOBULIN G
     Indication: Immunodeficiency
     Dosage: UNK GRAM
     Route: 058
     Dates: start: 20210122
  2. HIZENTRA [Suspect]
     Active Substance: HUMAN IMMUNOGLOBULIN G
     Dosage: 7 GRAM, QW
     Route: 058
  3. HIZENTRA [Suspect]
     Active Substance: HUMAN IMMUNOGLOBULIN G
     Dosage: 7 GRAM, QW
     Route: 058
  4. HIZENTRA [Suspect]
     Active Substance: HUMAN IMMUNOGLOBULIN G
     Dosage: 7 GRAM, QW
     Route: 058
     Dates: start: 20210122
  5. AMITRIPTYLINE [Concomitant]
     Active Substance: AMITRIPTYLINE
  6. AZELASTINE [Concomitant]
     Active Substance: AZELASTINE
  7. CLONAZEPAM [Concomitant]
     Active Substance: CLONAZEPAM
  8. EPINEPHRINE [Concomitant]
     Active Substance: EPINEPHRINE
  9. HYDROCHLOROTHIAZIDE [Concomitant]
     Active Substance: HYDROCHLOROTHIAZIDE
  10. HYDROXYZINE HYDROCHLORIDE [Concomitant]
     Active Substance: HYDROXYZINE HYDROCHLORIDE
  11. HYDROXYZINE PAMOATE [Concomitant]
     Active Substance: HYDROXYZINE PAMOATE
  12. IPRATROPIUM [Concomitant]
     Active Substance: IPRATROPIUM
  13. LINZESS [Concomitant]
     Active Substance: LINACLOTIDE
  14. LINZESS [Concomitant]
     Active Substance: LINACLOTIDE
  15. LOSARTAN POTASSIUM [Concomitant]
     Active Substance: LOSARTAN POTASSIUM
  16. HYDROCHLOROTHIAZIDE\LOSARTAN POTASSIUM [Concomitant]
     Active Substance: HYDROCHLOROTHIAZIDE\LOSARTAN POTASSIUM
  17. PRUCALOPRIDE [Concomitant]
     Active Substance: PRUCALOPRIDE
  18. RIMEGEPANT [Concomitant]
     Active Substance: RIMEGEPANT
  19. OXYCODONE/APAP [Concomitant]
     Active Substance: ACETAMINOPHEN\OXYCODONE HYDROCHLORIDE
  20. PIMECROLIMUS [Concomitant]
     Active Substance: PIMECROLIMUS
  21. REXULTI [Concomitant]
     Active Substance: BREXPIPRAZOLE
  22. REXULTI [Concomitant]
     Active Substance: BREXPIPRAZOLE
  23. RIZATRIPTAN [Concomitant]
     Active Substance: RIZATRIPTAN
  24. TESTOSTERONE CYPIONATE [Concomitant]
     Active Substance: TESTOSTERONE CYPIONATE
  25. TIZANIDINE [Concomitant]
     Active Substance: TIZANIDINE
  26. TRAZODONE [Concomitant]
     Active Substance: TRAZODONE HYDROCHLORIDE
  27. PLECANATIDE [Concomitant]
     Active Substance: PLECANATIDE
  28. ZOLPIDEM [Concomitant]
     Active Substance: ZOLPIDEM TARTRATE
  29. ZUBSOLV [Concomitant]
     Active Substance: BUPRENORPHINE HYDROCHLORIDE\NALOXONE HYDROCHLORIDE

REACTIONS (3)
  - Nasopharyngitis [Not Recovered/Not Resolved]
  - Sinusitis [Not Recovered/Not Resolved]
  - Infection [Not Recovered/Not Resolved]

NARRATIVE: CASE EVENT DATE: 20220912
